FAERS Safety Report 24256892 (Version 1)
Quarter: 2024Q3

REPORT INFORMATION
  Report Type: Report from Study
  Country: US (occurrence: US)
  Receive Date: 20240828
  Receipt Date: 20240828
  Transmission Date: 20241016
  Serious: No
  Sender: ACADIA PHARMACEUTICALS
  Company Number: US-ACADIA PHARMACEUTICALS INC.-ACA-2024-PIM-004402

PATIENT
  Age: 71 Year
  Sex: Male

DRUGS (2)
  1. NUPLAZID [Suspect]
     Active Substance: PIMAVANSERIN TARTRATE
     Indication: Dementia
     Dosage: 34 MILLIGRAM, QD
     Route: 048
     Dates: start: 202403
  2. NUPLAZID [Suspect]
     Active Substance: PIMAVANSERIN TARTRATE
     Indication: Behaviour disorder

REACTIONS (2)
  - Road traffic accident [Unknown]
  - Off label use [Unknown]

NARRATIVE: CASE EVENT DATE: 20240523
